FAERS Safety Report 25681374 (Version 1)
Quarter: 2025Q3

REPORT INFORMATION
  Report Type: Spontaneous
  Country: CN (occurrence: CN)
  Receive Date: 20250814
  Receipt Date: 20250814
  Transmission Date: 20251021
  Serious: Yes (Other)
  Sender: ASTELLAS
  Company Number: CN-ASTELLAS-2025-AER-044073

PATIENT
  Age: 62 Year
  Sex: Male
  Weight: 61 kg

DRUGS (2)
  1. PADCEV [Suspect]
     Active Substance: ENFORTUMAB VEDOTIN-EJFV
     Indication: Bladder cancer
     Route: 042
     Dates: start: 20250722
  2. PADCEV [Suspect]
     Active Substance: ENFORTUMAB VEDOTIN-EJFV
     Route: 042
     Dates: start: 20250729

REACTIONS (6)
  - Tumour necrosis [Unknown]
  - Pruritus [Recovering/Resolving]
  - Lipiduria [Recovering/Resolving]
  - Abnormal faeces [Not Recovered/Not Resolved]
  - Hunger [Unknown]
  - Increased appetite [Unknown]

NARRATIVE: CASE EVENT DATE: 20250723
